FAERS Safety Report 4490801-6 (Version None)
Quarter: 2004Q4

REPORT INFORMATION
  Report Type: 
  Country: None (occurrence: None)
  Receive Date: 20041102
  Receipt Date: 20041011
  Transmission Date: 20050328
  Serious: Yes (Hospitalization)
  Sender: FDA-Public Use
  Company Number: IT-ROCHE-382881

PATIENT
  Age: 57 Year
  Sex: Male
  Weight: 65 kg

DRUGS (2)
  1. PEG-INTERFERON ALFA 2A (RO 25-8310) [Suspect]
     Dosage: FORMULATION: INJ.
     Route: 058
     Dates: start: 20040827, end: 20041022
  2. RIBAVIRIN [Suspect]
     Route: 048
     Dates: start: 20040827, end: 20041009

REACTIONS (1)
  - MYOCARDIAL ISCHAEMIA [None]
